FAERS Safety Report 4602866-9 (Version None)
Quarter: 2005Q1

REPORT INFORMATION
  Report Type: 
  Country: None (occurrence: None)
  Receive Date: 20050309
  Receipt Date: 20050307
  Transmission Date: 20050727
  Serious: Yes (Other)
  Sender: FDA-Public Use
  Company Number: US-GLAXOSMITHKLINE-A0548441A

PATIENT
  Sex: Male

DRUGS (1)
  1. PAXIL [Suspect]
     Indication: DEPRESSION
     Route: 048
     Dates: start: 20000101

REACTIONS (6)
  - ANGER [None]
  - DECREASED INTEREST [None]
  - DEPRESSION [None]
  - HYPOAESTHESIA [None]
  - IRRITABILITY [None]
  - SUICIDAL IDEATION [None]
